FAERS Safety Report 4632757-9 (Version None)
Quarter: 2005Q2

REPORT INFORMATION
  Report Type: 
  Country: None (occurrence: None)
  Receive Date: 20050408
  Receipt Date: 20050408
  Transmission Date: 20051028
  Serious: Yes (Other)
  Sender: FDA-Public Use
  Company Number: None

PATIENT
  Age: 62 Year
  Sex: Male
  Weight: 86.1834 kg

DRUGS (2)
  1. PRAVACHOL [Suspect]
     Dosage: 40 MG 1 DAILY ORAL
     Route: 048
     Dates: start: 20000101, end: 20050131
  2. ZETIA [Suspect]
     Dosage: 10 MG 1 DAILY ORAL
     Route: 048
     Dates: start: 20050201, end: 20050318

REACTIONS (3)
  - BUNDLE BRANCH BLOCK LEFT [None]
  - CARDIOMYOPATHY [None]
  - MUSCLE SPASMS [None]
